FAERS Safety Report 7680431-7 (Version None)
Quarter: 2011Q3

REPORT INFORMATION
  Report Type: 
  Country: None (occurrence: None)
  Receive Date: 20110812
  Receipt Date: 20110803
  Transmission Date: 20111222
  Serious: Yes (Other)
  Sender: FDA-Public Use
  Company Number: SE-ABBOTT-11P-150-0843968-01

PATIENT
  Sex: Male
  Weight: 52 kg

DRUGS (3)
  1. REMICADE [Concomitant]
     Indication: CROHN'S DISEASE
     Dates: start: 20081113
  2. HUMIRA [Suspect]
     Indication: CROHN'S DISEASE
     Route: 058
     Dates: start: 20080423, end: 20081010
  3. HUMIRA [Suspect]
     Route: 058
     Dates: start: 20090911

REACTIONS (3)
  - POST PROCEDURAL COMPLICATION [None]
  - CONDITION AGGRAVATED [None]
  - CROHN'S DISEASE [None]
